FAERS Safety Report 5453973-2 (Version None)
Quarter: 2007Q3

REPORT INFORMATION
  Report Type: 
  Country: None (occurrence: None)
  Receive Date: 20070917
  Receipt Date: 20070508
  Transmission Date: 20080115
  Serious: No
  Sender: FDA-Public Use
  Company Number: US-ASTRAZENECA-2005UW12876

PATIENT
  Age: 37 Year
  Sex: Male
  Weight: 83.9 kg

DRUGS (12)
  1. SEROQUEL [Suspect]
     Indication: PSYCHOTIC DISORDER
     Route: 048
     Dates: start: 20000101
  2. SEROQUEL [Suspect]
     Indication: SLEEP DISORDER
     Route: 048
     Dates: start: 20000101
  3. SEROQUEL [Suspect]
     Indication: SCHIZOPHRENIA
     Route: 048
     Dates: start: 20000101
  4. SEROQUEL [Suspect]
     Route: 048
  5. SEROQUEL [Suspect]
     Route: 048
  6. SEROQUEL [Suspect]
     Route: 048
  7. LAMISIL [Concomitant]
  8. UNSPECIFIED ANXIETY TABLET [Concomitant]
     Indication: ANXIETY
  9. MELLARIL [Concomitant]
  10. SERENTIL [Concomitant]
  11. PROLIXIN [Concomitant]
  12. DEPAKOTE [Concomitant]

REACTIONS (6)
  - CARDIAC FLUTTER [None]
  - CONSTIPATION [None]
  - DYSPNOEA [None]
  - HAIR GROWTH ABNORMAL [None]
  - PSORIASIS [None]
  - TINNITUS [None]
